FAERS Safety Report 10170229 (Version 1)
Quarter: 2014Q2

REPORT INFORMATION
  Report Type: Spontaneous
  Country: US (occurrence: US)
  Receive Date: 20140513
  Receipt Date: 20140513
  Transmission Date: 20141212
  Serious: Yes (Death, Hospitalization)
  Sender: FDA-Public Use
  Company Number: US-JNJFOC-20140506844

PATIENT
  Age: 74 Year
  Sex: Male
  Weight: 82.1 kg

DRUGS (1)
  1. IMBRUVICA [Suspect]
     Indication: NON-HODGKIN^S LYMPHOMA
     Route: 048
     Dates: start: 20140331, end: 20140415

REACTIONS (11)
  - Chronic lymphocytic leukaemia [Fatal]
  - Syncope [Unknown]
  - Pneumonia [Unknown]
  - Lung infiltration [Unknown]
  - White blood cell count increased [Recovered/Resolved]
  - Blood creatinine increased [Unknown]
  - Decreased appetite [Unknown]
  - Diarrhoea [Unknown]
  - Pyrexia [Unknown]
  - Memory impairment [Unknown]
  - Dehydration [Unknown]
